FAERS Safety Report 5540183-3 (Version None)
Quarter: 2007Q4

REPORT INFORMATION
  Report Type: 
  Country: None (occurrence: None)
  Receive Date: 20071208
  Receipt Date: 20071019
  Transmission Date: 20080405
  Serious: No
  Sender: FDA-Public Use
  Company Number: US-AMGEN-KDL228793

PATIENT
  Sex: Female

DRUGS (9)
  1. ENBREL [Suspect]
     Indication: PSORIASIS
     Route: 058
     Dates: start: 20051005, end: 20060401
  2. ENBREL [Suspect]
     Indication: PSORIATIC ARTHROPATHY
  3. PREDNISONE [Concomitant]
  4. TOPAMAX [Concomitant]
  5. METHOTREXATE [Concomitant]
  6. ACTOS [Concomitant]
  7. ACTONEL [Concomitant]
  8. VICODIN [Concomitant]
  9. AMBIEN [Concomitant]

REACTIONS (1)
  - WEIGHT INCREASED [None]
